FAERS Safety Report 14909950 (Version 1)
Quarter: 2018Q2

REPORT INFORMATION
  Report Type: Spontaneous
  Country: US (occurrence: US)
  Receive Date: 20180517
  Receipt Date: 20180517
  Transmission Date: 20180711
  Serious: No
  Sender: FDA-Public Use
  Company Number: US-TARO-2017TAR01101

PATIENT
  Age: 66 Year
  Sex: Male
  Weight: 90.7 kg

DRUGS (1)
  1. TOPICORT [Suspect]
     Active Substance: DESOXIMETASONE
     Indication: RASH
     Dosage: ^A LIGHT SPRAY,^ 2X/DAY
     Route: 061
     Dates: start: 20171215

REACTIONS (4)
  - Accidental exposure to product [Not Recovered/Not Resolved]
  - Accidental overdose [Recovered/Resolved]
  - Application site pain [Recovered/Resolved]
  - Product quality issue [Not Recovered/Not Resolved]

NARRATIVE: CASE EVENT DATE: 20171215
